FAERS Safety Report 20633028 (Version 1)
Quarter: 2022Q1

REPORT INFORMATION
  Report Type: Spontaneous
  Country: CN (occurrence: CN)
  Receive Date: 20220324
  Receipt Date: 20220324
  Transmission Date: 20220423
  Serious: Yes (Other)
  Sender: FDA-Public Use
  Company Number: CN-KOREA IPSEN Pharma-2022-07968

PATIENT
  Age: 37 Year
  Sex: Female

DRUGS (2)
  1. DYSPORT [Suspect]
     Active Substance: ABOBOTULINUMTOXINA
     Indication: Skin wrinkling
     Dosage: DOSE NOT REPORTED
     Route: 065
     Dates: start: 20220318, end: 20220318
  2. DYSPORT [Suspect]
     Active Substance: ABOBOTULINUMTOXINA
     Indication: Off label use

REACTIONS (10)
  - Syncope [Recovering/Resolving]
  - Pulse absent [Recovering/Resolving]
  - Mental status changes [Recovering/Resolving]
  - Hypoglycaemia [Unknown]
  - Dizziness [Recovering/Resolving]
  - Tinnitus [Recovering/Resolving]
  - Musculoskeletal stiffness [Recovering/Resolving]
  - Nystagmus [Recovering/Resolving]
  - Weight decreased [Unknown]
  - Off label use [Unknown]

NARRATIVE: CASE EVENT DATE: 20220301
